FAERS Safety Report 19529709 (Version 2)
Quarter: 2021Q3

REPORT INFORMATION
  Report Type: Report from Study
  Country: None (occurrence: US)
  Receive Date: 20210713
  Receipt Date: 20210820
  Transmission Date: 20211014
  Serious: Yes (Hospitalization, Other)
  Sender: FDA-Public Use
  Company Number: US-ABBVIE-20K-163-3694623-00

PATIENT
  Age: 83 Year
  Sex: Female

DRUGS (4)
  1. HUMIRA [Suspect]
     Active Substance: ADALIMUMAB
     Route: 058
  2. HUMIRA [Suspect]
     Active Substance: ADALIMUMAB
     Indication: RHEUMATOID ARTHRITIS
     Dosage: CITRATE FREE
     Route: 058
     Dates: start: 2017
  3. HUMIRA [Suspect]
     Active Substance: ADALIMUMAB
     Dosage: CITRATE FREE
     Route: 058
     Dates: start: 202012
  4. HUMIRA [Suspect]
     Active Substance: ADALIMUMAB
     Route: 058

REACTIONS (32)
  - Hip fracture [Unknown]
  - Amnesia [Unknown]
  - Incorrect dose administered [Unknown]
  - Pyrexia [Recovered/Resolved]
  - Fall [Recovered/Resolved]
  - Gait inability [Unknown]
  - Impaired self-care [Unknown]
  - Wrong technique in product usage process [Unknown]
  - Bedridden [Unknown]
  - Arthralgia [Unknown]
  - Diarrhoea [Recovered/Resolved]
  - Vomiting [Recovered/Resolved]
  - Depression [Unknown]
  - Incorrect dose administered [Unknown]
  - Joint swelling [Unknown]
  - Loss of personal independence in daily activities [Unknown]
  - Conjunctivitis [Unknown]
  - Nodule [Unknown]
  - Asthma [Not Recovered/Not Resolved]
  - Headache [Recovered/Resolved]
  - Onychomycosis [Unknown]
  - Fall [Recovered/Resolved]
  - Fatigue [Not Recovered/Not Resolved]
  - Neuropathy peripheral [Not Recovered/Not Resolved]
  - Peripheral swelling [Unknown]
  - Urinary tract infection [Unknown]
  - Pain [Unknown]
  - Pain in extremity [Unknown]
  - Device issue [Unknown]
  - Gingival swelling [Unknown]
  - Post procedural swelling [Unknown]
  - Anxiety [Unknown]

NARRATIVE: CASE EVENT DATE: 2020
